FAERS Safety Report 7632177-9 (Version None)
Quarter: 2011Q3

REPORT INFORMATION
  Report Type: 
  Country: None (occurrence: None)
  Receive Date: 20110725
  Receipt Date: 20110526
  Transmission Date: 20111222
  Serious: Yes (Hospitalization)
  Sender: FDA-Public Use
  Company Number: US-BRISTOL-MYERS SQUIBB COMPANY-15781784

PATIENT
  Age: 57 Year
  Sex: Female

DRUGS (1)
  1. COUMADIN [Suspect]
     Indication: FACTOR V LEIDEN MUTATION
     Dosage: 1DF=10-12MG

REACTIONS (3)
  - TINNITUS [None]
  - INTERNATIONAL NORMALISED RATIO FLUCTUATION [None]
  - DIZZINESS [None]
